FAERS Safety Report 15715730 (Version 2)
Quarter: 2018Q4

REPORT INFORMATION
  Report Type: Spontaneous
  Country: US (occurrence: US)
  Receive Date: 20181212
  Receipt Date: 20181218
  Transmission Date: 20190205
  Serious: Yes (Life-Threatening, Other)
  Sender: FDA-Public Use
  Company Number: US-ASTRAZENECA-2018SF59206

PATIENT

DRUGS (1)
  1. PRILOSEC [Suspect]
     Active Substance: OMEPRAZOLE MAGNESIUM
     Indication: GASTROOESOPHAGEAL REFLUX DISEASE
     Route: 048

REACTIONS (9)
  - Renal failure [Unknown]
  - Hypertension [Unknown]
  - Clostridium difficile colitis [Unknown]
  - Weight decreased [Unknown]
  - Colitis [Unknown]
  - Swelling [Unknown]
  - Thrombosis [Unknown]
  - Diabetes mellitus [Unknown]
  - Renal disorder [Unknown]

NARRATIVE: CASE EVENT DATE: 2003
